FAERS Safety Report 19744402 (Version 1)
Quarter: 2021Q3

REPORT INFORMATION
  Report Type: Spontaneous
  Country: US (occurrence: US)
  Receive Date: 20210825
  Receipt Date: 20210825
  Transmission Date: 20211014
  Serious: No
  Sender: FDA-Public Use
  Company Number: US-PERRIGO-20US016009

PATIENT
  Age: 52 Year
  Sex: Female
  Weight: 79.37 kg

DRUGS (10)
  1. EVAMIST [Suspect]
     Active Substance: ESTRADIOL
     Indication: DIZZINESS
  2. ARMOUR THYROID [Concomitant]
     Active Substance: THYROID, PORCINE
     Indication: HYPOTHYROIDISM
     Dosage: 60 MG, QAM
     Route: 065
  3. EVAMIST [Suspect]
     Active Substance: ESTRADIOL
     Indication: HOT FLUSH
     Dosage: UNKNOWN, QD
     Route: 062
     Dates: start: 20201028, end: 202011
  4. EVAMIST [Suspect]
     Active Substance: ESTRADIOL
     Indication: HORMONE REPLACEMENT THERAPY
     Dosage: 3.06 MG, QD
     Route: 062
     Dates: start: 202002, end: 20201027
  5. EVAMIST [Suspect]
     Active Substance: ESTRADIOL
     Indication: INSOMNIA
     Dosage: UNKNOWN, QD
     Route: 062
     Dates: start: 202011, end: 20201124
  6. PERCOCET                           /00446701/ [Concomitant]
     Active Substance: ACETAMINOPHEN\OXYCODONE HYDROCHLORIDE\OXYCODONE TEREPHTHALATE
     Indication: PAIN
     Dosage: 2.5, 325 MG, PRN
     Route: 065
  7. VALIUM [Concomitant]
     Active Substance: DIAZEPAM
     Indication: RESTLESS LEGS SYNDROME
     Dosage: 5 MG, QHS
     Route: 065
  8. EVAMIST [Suspect]
     Active Substance: ESTRADIOL
     Indication: HYPERHIDROSIS
     Dosage: 3.06 MG, QD
     Route: 062
     Dates: start: 202011, end: 202011
  9. EVAMIST [Suspect]
     Active Substance: ESTRADIOL
     Indication: HEADACHE
     Dosage: 3.06 MG, QD
     Route: 062
     Dates: start: 20201125
  10. ADVIL [Concomitant]
     Active Substance: IBUPROFEN
     Indication: PAIN
     Dosage: UNKNOWN, 800 MG
     Route: 065

REACTIONS (4)
  - Therapeutic product effect decreased [Unknown]
  - Incorrect dose administered [Recovered/Resolved]
  - Breast tenderness [Not Recovered/Not Resolved]
  - Somnolence [Not Recovered/Not Resolved]

NARRATIVE: CASE EVENT DATE: 202002
